FAERS Safety Report 4304333-9 (Version None)
Quarter: 2004Q1

REPORT INFORMATION
  Report Type: 
  Country: None (occurrence: None)
  Receive Date: 20040224
  Receipt Date: 20040210
  Transmission Date: 20041129
  Serious: Yes (Hospitalization)
  Sender: FDA-Public Use
  Company Number: 2004-112963-NL

PATIENT
  Sex: Male

DRUGS (1)
  1. REMERON [Suspect]
     Indication: DEPRESSION
     Dosage: 30 MG QD ORAL
     Route: 048
     Dates: start: 20040101

REACTIONS (1)
  - HYPERNATRAEMIA [None]
